FAERS Safety Report 19216315 (Version 1)
Quarter: 2021Q2

REPORT INFORMATION
  Report Type: Report from Study
  Country: PL (occurrence: PL)
  Receive Date: 20210505
  Receipt Date: 20210505
  Transmission Date: 20210717
  Serious: Yes (Hospitalization)
  Sender: FDA-Public Use
  Company Number: PL-TEVA-2021-PL-1907028

PATIENT
  Age: 31 Year
  Sex: Male

DRUGS (3)
  1. CHLORPROTHIXENE [Suspect]
     Active Substance: CHLORPROTHIXENE
     Route: 048
  2. CARBAMAZEPINE. [Suspect]
     Active Substance: CARBAMAZEPINE
     Route: 048
  3. ZOLPIDEM [Suspect]
     Active Substance: ZOLPIDEM TARTRATE
     Route: 048

REACTIONS (8)
  - Liver injury [Unknown]
  - Toxicity to various agents [Unknown]
  - Drug dependence [Unknown]
  - Rhabdomyolysis [Unknown]
  - Hypocalcaemia [Unknown]
  - Respiratory alkalosis [Unknown]
  - Metabolic acidosis [Unknown]
  - Drug abuse [Unknown]
